FAERS Safety Report 7831476-5 (Version None)
Quarter: 2011Q4

REPORT INFORMATION
  Report Type: 
  Country: None (occurrence: None)
  Receive Date: 20111021
  Receipt Date: 20111021
  Transmission Date: 20120403
  Serious: Yes (Other)
  Sender: FDA-Public Use
  Company Number: None

PATIENT
  Age: 30 Year
  Sex: Female

DRUGS (1)
  1. PREGNITA [Suspect]
     Indication: VOMITING IN PREGNANCY
     Dosage: 1-2 CAPSULES
     Route: 048
     Dates: start: 20101001, end: 20110101

REACTIONS (2)
  - BLOOD LEAD INCREASED [None]
  - MATERNAL EXPOSURE DURING PREGNANCY [None]
